FAERS Safety Report 6179334-9 (Version None)
Quarter: 2009Q2

REPORT INFORMATION
  Report Type: 
  Country: None (occurrence: None)
  Receive Date: 20090501
  Receipt Date: 20090501
  Transmission Date: 20091009
  Serious: No
  Sender: FDA-Public Use
  Company Number: None

PATIENT
  Sex: Female
  Weight: 84.55 kg

DRUGS (6)
  1. KEFLEX [Suspect]
     Dosage: 500MG CAPSULE 500 MG QID ORAL
     Route: 048
     Dates: start: 20090428, end: 20090430
  2. ASPIRIN [Concomitant]
  3. FISH OIL CAPSULE (OMEGA-3-FATTY ACIDS) [Concomitant]
  4. HYDROCHLOROTHIAZIDE [Concomitant]
  5. METOPROLOL SUCCINATE EXTENDED RELEASE [Concomitant]
  6. MULTI-VITAMINS [Concomitant]

REACTIONS (1)
  - GASTROINTESTINAL DISORDER [None]
